FAERS Safety Report 7790824-5 (Version None)
Quarter: 2011Q3

REPORT INFORMATION
  Report Type: 
  Country: None (occurrence: None)
  Receive Date: 20110930
  Receipt Date: 20110922
  Transmission Date: 20111222
  Serious: Yes (Other)
  Sender: FDA-Public Use
  Company Number: US-RB-030065-11

PATIENT
  Age: 34 Year
  Sex: Male

DRUGS (1)
  1. SUBOXONE [Suspect]
     Indication: PRODUCT USED FOR UNKNOWN INDICATION
     Dosage: SUBLINGUAL FILM; DOSING INFORMATION UNKNOWN
     Route: 065
     Dates: start: 20110703

REACTIONS (8)
  - SUICIDAL IDEATION [None]
  - PARAESTHESIA [None]
  - IRRITABILITY [None]
  - DYSPNOEA [None]
  - OFF LABEL USE [None]
  - SOMNOLENCE [None]
  - CONSTIPATION [None]
  - FEELING ABNORMAL [None]
